FAERS Safety Report 8338997-X (Version None)
Quarter: 2012Q2

REPORT INFORMATION
  Report Type: 
  Country: None (occurrence: None)
  Receive Date: 20120507
  Receipt Date: 20120503
  Transmission Date: 20120825
  Serious: Yes (Other)
  Sender: FDA-Public Use
  Company Number: ES-BAYER-2012-042985

PATIENT
  Sex: Male

DRUGS (1)
  1. ULTRAVIST 150 [Suspect]
     Dosage: UNK

REACTIONS (5)
  - CIRCULATORY COLLAPSE [None]
  - RASH [None]
  - LARYNGEAL OEDEMA [None]
  - PRURITUS GENERALISED [None]
  - LOSS OF CONSCIOUSNESS [None]
